FAERS Safety Report 21373815 (Version 3)
Quarter: 2023Q2

REPORT INFORMATION
  Report Type: Spontaneous
  Country: CA (occurrence: CA)
  Receive Date: 20220926
  Receipt Date: 20230501
  Transmission Date: 20230721
  Serious: Yes (Other)
  Sender: FDA-Public Use
  Company Number: CA-SAMSUNG BIOEPIS-SB-2022-13746

PATIENT
  Age: 52 Year
  Sex: Male
  Weight: 128 kg

DRUGS (1)
  1. INFLIXIMAB [Suspect]
     Active Substance: INFLIXIMAB
     Indication: Crohn^s disease
     Route: 042

REACTIONS (11)
  - Abdominal discomfort [Not Recovered/Not Resolved]
  - Drug eruption [Not Recovered/Not Resolved]
  - Lethargy [Recovered/Resolved]
  - Nasopharyngitis [Recovered/Resolved]
  - Rash [Not Recovered/Not Resolved]
  - Rhinorrhoea [Recovered/Resolved]
  - Weight decreased [Not Recovered/Not Resolved]
  - Weight increased [Not Recovered/Not Resolved]
  - Therapeutic product effect incomplete [Not Recovered/Not Resolved]
  - Intentional product use issue [Not Recovered/Not Resolved]
  - Off label use [Not Recovered/Not Resolved]
